FAERS Safety Report 6817859-0 (Version None)
Quarter: 2010Q3

REPORT INFORMATION
  Report Type: 
  Country: None (occurrence: None)
  Receive Date: 20100706
  Receipt Date: 20100623
  Transmission Date: 20110219
  Serious: No
  Sender: FDA-Public Use
  Company Number: JP-MERCK-1006USA03551

PATIENT
  Age: 71 Year
  Sex: Male

DRUGS (12)
  1. SINGULAIR [Suspect]
     Indication: ASTHMA
     Route: 048
     Dates: start: 20100226, end: 20100616
  2. AMLODIPINE [Concomitant]
     Route: 048
     Dates: start: 20090501
  3. ASPIRIN [Concomitant]
     Route: 048
     Dates: start: 20070905
  4. HYZAAR [Concomitant]
     Route: 048
     Dates: start: 20090617
  5. URINORM [Concomitant]
     Route: 048
     Dates: start: 20091001
  6. MICARDIS [Concomitant]
     Route: 048
     Dates: start: 20090706
  7. CLARITH [Concomitant]
     Route: 048
     Dates: start: 20100205, end: 20100212
  8. KAKKON-TO [Concomitant]
     Route: 048
     Dates: start: 20100205, end: 20100304
  9. PERINDOPRIL ERBUMINE [Concomitant]
     Route: 048
     Dates: start: 20090501
  10. ADOAIR [Concomitant]
     Route: 048
     Dates: start: 20100205
  11. MUCOSIL-10 [Concomitant]
     Route: 048
     Dates: start: 20100226
  12. URALYT [Concomitant]
     Route: 048
     Dates: start: 20100312, end: 20100413

REACTIONS (1)
  - PANCYTOPENIA [None]
